FAERS Safety Report 7338366-5 (Version None)
Quarter: 2011Q1

REPORT INFORMATION
  Report Type: 
  Country: None (occurrence: None)
  Receive Date: 20110224
  Receipt Date: 20110216
  Transmission Date: 20110831
  Serious: Yes (Life-Threatening, Hospitalization)
  Sender: FDA-Public Use
  Company Number: 2011AC000018

PATIENT
  Age: 79 Year
  Sex: Female

DRUGS (16)
  1. GLYCERYL TRINITRATE [Concomitant]
  2. CLARITHROMYCIN [Concomitant]
  3. AMLODIPINE [Concomitant]
  4. PREDNISOLONE [Concomitant]
  5. BISOPROLOL [Concomitant]
  6. SERETIDE [Concomitant]
  7. TRIMETHOPRIM [Concomitant]
  8. DIGOXIN [Suspect]
     Indication: ATRIAL FIBRILLATION
     Dosage: 125 UG; QD, PO
     Route: 048
  9. WARFARIN [Concomitant]
  10. DOXYCYCLINE [Concomitant]
  11. LANSOPRAZOLE [Concomitant]
  12. SALBUTAMOL [Concomitant]
  13. IPRATROPIUM BROMIDE [Concomitant]
  14. GLICLAZIDE [Concomitant]
  15. FUROSEMIDE [Concomitant]
  16. ATORVASTATIN CALCIUM [Concomitant]

REACTIONS (16)
  - TOXICITY TO VARIOUS AGENTS [None]
  - DYSPNOEA [None]
  - BRADYCARDIA [None]
  - HYPOTHERMIA [None]
  - UNRESPONSIVE TO STIMULI [None]
  - LOWER RESPIRATORY TRACT INFECTION [None]
  - CONFUSIONAL STATE [None]
  - DECREASED APPETITE [None]
  - DRUG HYPERSENSITIVITY [None]
  - DRUG INTERACTION [None]
  - ATRIAL FIBRILLATION [None]
  - CHRONIC OBSTRUCTIVE PULMONARY DISEASE [None]
  - CONDITION AGGRAVATED [None]
  - RASH [None]
  - MALAISE [None]
  - DIARRHOEA [None]
